FAERS Safety Report 15332723 (Version 5)
Quarter: 2019Q4

REPORT INFORMATION
  Report Type: Report from Study
  Country: CA (occurrence: CA)
  Receive Date: 20180830
  Receipt Date: 20191018
  Transmission Date: 20200122
  Serious: No
  Sender: FDA-Public Use
  Company Number: CA-ROCHE-2067332

PATIENT
  Age: 41 Year
  Sex: Female
  Weight: 76 kg

DRUGS (6)
  1. OCREVUS [Suspect]
     Active Substance: OCRELIZUMAB
     Indication: RELAPSING-REMITTING MULTIPLE SCLEROSIS
     Dosage: 300MG ON DAY 1 AND 300 MG ON DAY 15,
     Route: 042
     Dates: start: 20180131
  2. VYVANSE [Concomitant]
     Active Substance: LISDEXAMFETAMINE DIMESYLATE
     Route: 048
  3. OCREVUS [Suspect]
     Active Substance: OCRELIZUMAB
     Route: 042
  4. DULOXETINE. [Concomitant]
     Active Substance: DULOXETINE
     Route: 048
  5. QUETIAPINE. [Concomitant]
     Active Substance: QUETIAPINE
     Dosage: 1 TO 3 TABS OD
     Route: 048
  6. ZOPICLONE [Concomitant]
     Active Substance: ZOPICLONE
     Dosage: AT BED TIME
     Route: 048

REACTIONS (16)
  - Myalgia [Recovered/Resolved]
  - Hot flush [Recovering/Resolving]
  - Oral herpes [Recovered/Resolved]
  - Palpitations [Recovering/Resolving]
  - Hot flush [Recovered/Resolved]
  - Fatigue [Recovering/Resolving]
  - Palpitations [Recovering/Resolving]
  - Sinusitis [Recovering/Resolving]
  - Feeling hot [Not Recovered/Not Resolved]
  - Infusion related reaction [Recovered/Resolved]
  - Abdominal distension [Recovering/Resolving]
  - Fatigue [Not Recovered/Not Resolved]
  - Palpitations [Not Recovered/Not Resolved]
  - Infusion related reaction [Recovered/Resolved]
  - Ear infection [Unknown]
  - Migraine [Not Recovered/Not Resolved]

NARRATIVE: CASE EVENT DATE: 20180131
